FAERS Safety Report 8817738 (Version 2)
Quarter: 2012Q4

REPORT INFORMATION
  Report Type: 
  Country: PH (occurrence: PH)
  Receive Date: 20121001
  Receipt Date: 20121106
  Transmission Date: 20130627
  Serious: Yes (Other)
  Sender: FDA-Public Use
  Company Number: PH-PFIZER INC-2012235485

PATIENT
  Age: 34 Year
  Sex: Female

DRUGS (2)
  1. XALATAN [Suspect]
     Dosage: once daily at bedtime
  2. AZARGA [Concomitant]
     Dosage: UNK

REACTIONS (2)
  - Exophthalmos [Recovered/Resolved]
  - Hypersensitivity [Recovered/Resolved]
